FAERS Safety Report 7135035-1 (Version None)
Quarter: 2010Q4

REPORT INFORMATION
  Report Type: 
  Country: None (occurrence: None)
  Receive Date: 20101203
  Receipt Date: 20101130
  Transmission Date: 20110411
  Serious: Yes (Hospitalization)
  Sender: FDA-Public Use
  Company Number: US-B.I. PHARMACEUTICALS,INC./RIDGEFIELD-2010-BP-13377BP

PATIENT
  Age: 73 Year
  Sex: Female

DRUGS (5)
  1. PRADAXA [Suspect]
     Indication: CEREBROVASCULAR ACCIDENT PROPHYLAXIS
     Dosage: 300 MG
     Route: 048
     Dates: start: 20101116
  2. PRADAXA [Suspect]
     Indication: ATRIAL FLUTTER
  3. SOTALOL [Concomitant]
     Indication: HYPERTENSION
  4. M.V.I. [Concomitant]
     Indication: VITAMIN SUPPLEMENTATION
  5. DIOVAN [Concomitant]
     Indication: HYPERTENSION

REACTIONS (7)
  - DIZZINESS [None]
  - EAR PAIN [None]
  - HEADACHE [None]
  - NAUSEA [None]
  - OROPHARYNGEAL PAIN [None]
  - VERTIGO [None]
  - VIITH NERVE PARALYSIS [None]
